FAERS Safety Report 6902251-0 (Version None)
Quarter: 2010Q3

REPORT INFORMATION
  Report Type: 
  Country: None (occurrence: None)
  Receive Date: 20100803
  Receipt Date: 20080508
  Transmission Date: 20110219
  Serious: No
  Sender: FDA-Public Use
  Company Number: US-PFIZER INC-2008041669

PATIENT
  Sex: Female

DRUGS (7)
  1. LYRICA [Suspect]
     Indication: POLYNEUROPATHY
     Dates: start: 20070201, end: 20070401
  2. DIGOXIN [Concomitant]
     Route: 048
  3. LISINOPRIL [Concomitant]
     Route: 048
  4. FUROSEMIDE [Concomitant]
     Route: 048
  5. WARFARIN SODIUM [Concomitant]
     Route: 048
  6. CORTICOSTEROIDS [Concomitant]
     Route: 048
  7. MIRALAX [Concomitant]
     Route: 048

REACTIONS (1)
  - OEDEMA PERIPHERAL [None]
